FAERS Safety Report 5744013-6 (Version None)
Quarter: 2008Q2

REPORT INFORMATION
  Report Type: 
  Country: None (occurrence: None)
  Receive Date: 20080520
  Receipt Date: 20080515
  Transmission Date: 20081010
  Serious: Yes (Other)
  Sender: FDA-Public Use
  Company Number: US-BAYER-200810550BCC

PATIENT
  Age: 65 Year
  Sex: Female
  Weight: 91 kg

DRUGS (2)
  1. ASPIRIN [Suspect]
     Indication: ISCHAEMIC HEART DISEASE PROPHYLAXIS
     Route: 048
     Dates: start: 20080205
  2. ASPIRIN [Suspect]
     Route: 048
     Dates: start: 20080101

REACTIONS (6)
  - ANGIOEDEMA [None]
  - DYSPEPSIA [None]
  - DYSPHONIA [None]
  - EYELID OEDEMA [None]
  - PHARYNGEAL OEDEMA [None]
  - SENSATION OF PRESSURE [None]
